FAERS Safety Report 8327987-9 (Version None)
Quarter: 2012Q2

REPORT INFORMATION
  Report Type: 
  Country: None (occurrence: None)
  Receive Date: 20120502
  Receipt Date: 20120424
  Transmission Date: 20120825
  Serious: Yes (Other)
  Sender: FDA-Public Use
  Company Number: US-BAYER-2012-006903

PATIENT
  Age: 19 Year
  Sex: Female
  Weight: 90.703 kg

DRUGS (7)
  1. IBUPROFEN [Concomitant]
     Dosage: 600 MG, UNK
     Route: 048
  2. SULFAMETHOXAZOLE [Concomitant]
     Dosage: 800-160MG
     Route: 048
  3. YAZ [Suspect]
     Indication: CONTRACEPTION
     Dosage: UNK
     Dates: start: 20090408, end: 20090910
  4. METOPROLOL TARTRATE [Concomitant]
     Dosage: 50 MG, UNK
     Route: 048
  5. HYDROCODONE BITARTRATE + ACETAMINOPHEN [Concomitant]
     Dosage: 5-500MG
     Route: 048
  6. MICRONOR [Concomitant]
     Indication: CONTRACEPTION
     Dosage: UNK
     Dates: start: 20091001
  7. FAMOTIDINE [Concomitant]
     Dosage: 20 MG, UNK
     Route: 048

REACTIONS (4)
  - CHOLELITHIASIS [None]
  - ABDOMINAL PAIN [None]
  - CHOLECYSTITIS CHRONIC [None]
  - PAIN [None]
